FAERS Safety Report 16409611 (Version 2)
Quarter: 2019Q4

REPORT INFORMATION
  Report Type: Spontaneous
  Country: CA (occurrence: CA)
  Receive Date: 20190610
  Receipt Date: 20191011
  Transmission Date: 20200122
  Serious: Yes (Hospitalization)
  Sender: FDA-Public Use
  Company Number: CA-PFIZER INC-2019245273

PATIENT
  Age: 2 Day
  Sex: Male
  Weight: 3.7 kg

DRUGS (1)
  1. EFFEXOR XR [Suspect]
     Active Substance: VENLAFAXINE HYDROCHLORIDE
     Indication: DEPRESSION
     Dosage: 37.5 MG, DAILY
     Route: 064

REACTIONS (4)
  - Hypoglycaemia neonatal [Recovered/Resolved]
  - Respiratory distress [Recovered/Resolved]
  - Maternal exposure during pregnancy [Recovered/Resolved]
  - Transient tachypnoea of the newborn [Recovered/Resolved]

NARRATIVE: CASE EVENT DATE: 2018
